FAERS Safety Report 6420426-4 (Version None)
Quarter: 2009Q4

REPORT INFORMATION
  Report Type: 
  Country: None (occurrence: None)
  Receive Date: 20091021
  Receipt Date: 20090609
  Transmission Date: 20100525
  Serious: No
  Sender: FDA-Public Use
  Company Number: SPV1-2009-00980

PATIENT
  Age: 7 Year
  Sex: Male
  Weight: 18.1 kg

DRUGS (1)
  1. VYVANSE [Suspect]
     Dosage: 30 MG, 1X/DAY:QD, ORAL
     Route: 048
     Dates: start: 20090428, end: 20090530

REACTIONS (2)
  - DEPRESSED MOOD [None]
  - DYSGEUSIA [None]
